FAERS Safety Report 21655851 (Version 1)
Quarter: 2022Q4

REPORT INFORMATION
  Report Type: Report from Study
  Country: GB (occurrence: GB)
  Receive Date: 20221129
  Receipt Date: 20221129
  Transmission Date: 20230113
  Serious: Yes (Other)
  Sender: FDA-Public Use
  Company Number: GB-ABBVIE-22K-167-4279659-00

PATIENT
  Age: 66 Year
  Sex: Female

DRUGS (17)
  1. CARBIDOPA\LEVODOPA [Suspect]
     Active Substance: CARBIDOPA\LEVODOPA
     Indication: Parkinson^s disease
     Dosage: DUODOPA 20MG/5MG; MD 8.3MLS, CR 2.6MLS; ED 2.0MLS; ;
     Route: 050
     Dates: end: 20220214
  2. CARBIDOPA\LEVODOPA [Suspect]
     Active Substance: CARBIDOPA\LEVODOPA
     Dosage: MD: 2.0MLS  CR: 3.5MLS ED: 2.4MLS, NIGHT- CR2.2MLS,; ;
     Route: 050
  3. CARBIDOPA\LEVODOPA [Suspect]
     Active Substance: CARBIDOPA\LEVODOPA
     Dosage: MD 8.3; CR 2.9; ED  2.2
     Route: 050
     Dates: start: 2022, end: 2022
  4. CARBIDOPA\LEVODOPA [Suspect]
     Active Substance: CARBIDOPA\LEVODOPA
     Dosage: DAY PUMP = MD 2.0; CR3.3; ED2.4 / NIGHT PUMP = MD 2.0; CR2.0; ED2.4
     Route: 050
     Dates: start: 2022, end: 2022
  5. CARBIDOPA\LEVODOPA [Suspect]
     Active Substance: CARBIDOPA\LEVODOPA
     Dosage: MD 8.5 TO 5.0 CR 3.3 ED 2.4
     Route: 050
     Dates: start: 2022, end: 2022
  6. CARBIDOPA\LEVODOPA [Suspect]
     Active Substance: CARBIDOPA\LEVODOPA
     Dosage: DAY MD: 2.0  CR:3.3, ED: 2.4 NIGHT PUMP MD:2.0 CR: 2.0 ED 2.4, 20MGS/5MGS; ;
     Route: 050
  7. CARBIDOPA\LEVODOPA [Suspect]
     Active Substance: CARBIDOPA\LEVODOPA
     Dosage: MD 8.3 CR 2.9 UP TO 3.1 ED 2.2
     Route: 050
     Dates: start: 2022, end: 2022
  8. CARBIDOPA\LEVODOPA [Suspect]
     Active Substance: CARBIDOPA\LEVODOPA
     Route: 050
     Dates: start: 2022, end: 2022
  9. CARBIDOPA\LEVODOPA [Suspect]
     Active Substance: CARBIDOPA\LEVODOPA
     Dosage: MD 8.3MLS CR 3.0MLS ED 2.4MLS
     Route: 050
     Dates: start: 202202, end: 2022
  10. CARBIDOPA\LEVODOPA [Suspect]
     Active Substance: CARBIDOPA\LEVODOPA
     Dosage: MD 8.3, CR 3.3, ED 2.4
     Route: 050
     Dates: start: 2022, end: 2022
  11. CARBIDOPA\LEVODOPA [Suspect]
     Active Substance: CARBIDOPA\LEVODOPA
     Dosage: CR 2.8MLS; ED 2.2MLS; MD 8.3
     Route: 050
     Dates: start: 20220214, end: 202202
  12. CARBIDOPA\LEVODOPA [Suspect]
     Active Substance: CARBIDOPA\LEVODOPA
     Dosage: MD 8.3MLS CR 3.0MLS ED 2.2 MLS
     Route: 050
     Dates: start: 202202, end: 202202
  13. CARBIDOPA\LEVODOPA [Suspect]
     Active Substance: CARBIDOPA\LEVODOPA
     Dosage: DAY PUMP = MD 2.5; CR 3.3; ED 2.4 / NIGHT PUMP = MD 3.0; CR 2.0; ED 2.4
     Route: 050
     Dates: start: 2022, end: 2022
  14. BENSERAZIDE HYDROCHLORIDE\LEVODOPA [Concomitant]
     Active Substance: BENSERAZIDE HYDROCHLORIDE\LEVODOPA
     Indication: Product used for unknown indication
     Dosage: 25/100MGS 2 TIMES AT NIGHT
  15. CLONAZEPAM [Concomitant]
     Active Substance: CLONAZEPAM
     Indication: Product used for unknown indication
     Dosage: SOMETIMES AT NIGHT
  16. AMANTADINE [Concomitant]
     Active Substance: AMANTADINE
     Indication: Product used for unknown indication
  17. ROTIGOTINE [Concomitant]
     Active Substance: ROTIGOTINE
     Indication: Product used for unknown indication
     Route: 050

REACTIONS (27)
  - Sleep terror [Unknown]
  - Stress [Unknown]
  - COVID-19 [Not Recovered/Not Resolved]
  - Poor quality sleep [Unknown]
  - Medical device site vesicles [Recovered/Resolved]
  - Head injury [Unknown]
  - Discomfort [Unknown]
  - Muscle rigidity [Not Recovered/Not Resolved]
  - Mobility decreased [Unknown]
  - Device use error [Unknown]
  - Nightmare [Unknown]
  - Tremor [Unknown]
  - Dystonia [Not Recovered/Not Resolved]
  - Malaise [Not Recovered/Not Resolved]
  - Fall [Unknown]
  - Abnormal dreams [Unknown]
  - Hypokinesia [Unknown]
  - Freezing phenomenon [Unknown]
  - Drug ineffective [Unknown]
  - Therapeutic product effect incomplete [Unknown]
  - Unevaluable event [Unknown]
  - Dyskinesia [Not Recovered/Not Resolved]
  - On and off phenomenon [Unknown]
  - Stoma site oedema [Recovered/Resolved]
  - Overdose [Unknown]
  - Adverse drug reaction [Unknown]
  - Muscle rigidity [Unknown]

NARRATIVE: CASE EVENT DATE: 20220101
